FAERS Safety Report 7554454-2 (Version None)
Quarter: 2011Q2

REPORT INFORMATION
  Report Type: 
  Country: None (occurrence: None)
  Receive Date: 20110617
  Receipt Date: 20110606
  Transmission Date: 20111010
  Serious: Yes (Hospitalization)
  Sender: FDA-Public Use
  Company Number: A0920765C

PATIENT
  Age: 62 Year
  Sex: Male
  Weight: 76.6 kg

DRUGS (15)
  1. EVEROLIMUS [Suspect]
     Indication: BLADDER CANCER
     Dosage: 5MG ALTERNATE DAYS
     Route: 048
     Dates: start: 20110113, end: 20110518
  2. MAGNESIUM OXIDE [Concomitant]
  3. CALCIUM CARBONATE [Concomitant]
  4. METOPROLOL TARTRATE [Concomitant]
  5. LOVENOX [Concomitant]
     Dates: end: 20110605
  6. ATIVAN [Concomitant]
  7. COMPAZINE [Concomitant]
  8. SENNA-MINT WAF [Concomitant]
  9. GABAPENTIN [Concomitant]
  10. TAMSULOSIN HCL [Concomitant]
  11. PAZOPANIB [Suspect]
     Indication: BLADDER CANCER
     Dosage: 400MG PER DAY
     Route: 048
     Dates: start: 20110113, end: 20110518
  12. OXYCONTIN [Concomitant]
  13. OXYCODONE HCL [Concomitant]
  14. MIRALAX [Concomitant]
  15. COLACE [Concomitant]

REACTIONS (2)
  - MENTAL STATUS CHANGES [None]
  - PYREXIA [None]
